FAERS Safety Report 21585008 (Version 1)
Quarter: 2022Q4

REPORT INFORMATION
  Report Type: Spontaneous
  Country: FR (occurrence: FR)
  Receive Date: 20221111
  Receipt Date: 20221111
  Transmission Date: 20230113
  Serious: Yes (Hospitalization)
  Sender: FDA-Public Use
  Company Number: None

PATIENT
  Age: 43 Year
  Sex: Female
  Weight: 55 kg

DRUGS (4)
  1. ZOPICLONE [Suspect]
     Active Substance: ZOPICLONE
     Indication: Toxicity to various agents
     Dosage: UNIT DOSE : 30 DOSAGE FORMS,  FREQUENCY TIME : 1 TOTAL , DURATION : 1 DAY
     Route: 065
     Dates: start: 20221017, end: 20221017
  2. PROPRANOLOL [Suspect]
     Active Substance: PROPRANOLOL HYDROCHLORIDE
     Indication: Toxicity to various agents
     Dosage: UNIT DOSE :  40 DOSAGE FORMS, FREQUENCY TIME : 1 TOTAL, DURATION : 1 DAY
     Route: 065
     Dates: start: 20221017, end: 20221017
  3. OXAZEPAM [Suspect]
     Active Substance: OXAZEPAM
     Indication: Toxicity to various agents
     Dosage: SCORED TABLET, UNIT DOSE : 225 DOSAGE FORMS,  FREQUENCY TIME : 1 TOTAL , DURATION : 1 DAY
     Route: 065
     Dates: start: 20221017, end: 20221017
  4. DOLIPRANE [Suspect]
     Active Substance: ACETAMINOPHEN
     Indication: Toxicity to various agents
     Dosage: UNIT DOSE : 16 DOSAGE FORMS,  FREQUENCY TIME : 1 TOTAL , DURATION : 1 DAY
     Route: 065
     Dates: start: 20221017, end: 20221017

REACTIONS (2)
  - Coma [Recovered/Resolved]
  - Toxicity to various agents [Recovered/Resolved]

NARRATIVE: CASE EVENT DATE: 20221017
